FAERS Safety Report 11253692 (Version 1)
Quarter: 2015Q3

REPORT INFORMATION
  Report Type: Spontaneous
  Country: None (occurrence: None)
  Receive Date: 20150707
  Receipt Date: 20150707
  Transmission Date: 20151125
  Serious: No
  Sender: FDA-Public Use
  Company Number: None

PATIENT
  Age: 29 Year
  Sex: Female
  Weight: 50.8 kg

DRUGS (6)
  1. PAXIL [Suspect]
     Active Substance: PAROXETINE HYDROCHLORIDE
     Indication: ANXIETY
     Dosage: 1 PILL
     Route: 048
     Dates: start: 20150629, end: 20150629
  2. CYSTEX PLUS [Concomitant]
     Active Substance: METHENAMINE\SODIUM SALICYLATE
  3. PAXIL [Suspect]
     Active Substance: PAROXETINE HYDROCHLORIDE
     Indication: PANIC DISORDER
     Dosage: 1 PILL
     Route: 048
     Dates: start: 20150629, end: 20150629
  4. CIPROFLOXACIN. [Concomitant]
     Active Substance: CIPROFLOXACIN
  5. IBUPROFEN. [Concomitant]
     Active Substance: IBUPROFEN
  6. CRANBERRY SUPPLEMENT [Concomitant]

REACTIONS (6)
  - Vaginismus [None]
  - Yawning [None]
  - Fatigue [None]
  - Urinary tract infection [None]
  - Nausea [None]
  - Muscle spasms [None]

NARRATIVE: CASE EVENT DATE: 20150629
